FAERS Safety Report 7646844-4 (Version None)
Quarter: 2011Q3

REPORT INFORMATION
  Report Type: 
  Country: None (occurrence: None)
  Receive Date: 20110801
  Receipt Date: 20110718
  Transmission Date: 20111222
  Serious: Yes (Life-Threatening, Hospitalization)
  Sender: FDA-Public Use
  Company Number: US-ELI_LILLY_AND_COMPANY-US201106003911

PATIENT
  Age: 62 Year
  Sex: Female

DRUGS (5)
  1. FORTEO [Suspect]
     Dosage: 20 UG, QD
     Route: 065
     Dates: start: 20110428
  2. PREDNISONE [Concomitant]
  3. FORTEO [Suspect]
     Indication: OSTEOPOROSIS
     Dosage: 20 UG, QD
     Route: 065
     Dates: start: 20080101, end: 20100101
  4. FORTEO [Suspect]
     Dosage: 20 UG, QD
  5. FORTEO [Suspect]
     Dosage: 20 UG, QD

REACTIONS (4)
  - PNEUMONIA [None]
  - STRESS FRACTURE [None]
  - HAND FRACTURE [None]
  - GAIT DISTURBANCE [None]
